FAERS Safety Report 13194148 (Version 1)
Quarter: 2017Q1

REPORT INFORMATION
  Report Type: Spontaneous
  Country: DE (occurrence: DE)
  Receive Date: 20170207
  Receipt Date: 20170207
  Transmission Date: 20170428
  Serious: Yes (Other)
  Sender: FDA-Public Use
  Company Number: DE-JNJFOC-20170205523

PATIENT
  Age: 60 Year
  Sex: Male

DRUGS (1)
  1. XARELTO [Suspect]
     Active Substance: RIVAROXABAN
     Indication: PRODUCT USED FOR UNKNOWN INDICATION
     Route: 048

REACTIONS (7)
  - Thrombocytosis [Unknown]
  - Lipase increased [Unknown]
  - Transaminases increased [Unknown]
  - Anaemia [Unknown]
  - Pyrexia [Unknown]
  - Malaise [Unknown]
  - Product use issue [Unknown]
